FAERS Safety Report 20041994 (Version 1)
Quarter: 2021Q4

REPORT INFORMATION
  Report Type: Spontaneous
  Country: US (occurrence: US)
  Receive Date: 20211108
  Receipt Date: 20211108
  Transmission Date: 20220303
  Serious: No
  Sender: FDA-Public Use
  Company Number: US-SA-SAC20211102001135

PATIENT
  Age: 58 Year
  Sex: Male

DRUGS (20)
  1. DUPIXENT [Suspect]
     Active Substance: DUPILUMAB
     Indication: Asthma
     Dosage: 300 MG, QOW
     Route: 058
     Dates: start: 20210427
  2. HUMIRA [Suspect]
     Active Substance: ADALIMUMAB
  3. CORTICOSTEROID NOS [Concomitant]
     Active Substance: CORTICOSTEROID NOS
     Route: 048
  4. ATORVASTATIN [Concomitant]
     Active Substance: ATORVASTATIN
  5. CEFDINIR [Concomitant]
     Active Substance: CEFDINIR
  6. CITALOPRAM [Concomitant]
     Active Substance: CITALOPRAM HYDROBROMIDE
  7. FOLIC ACID [Concomitant]
     Active Substance: FOLIC ACID
  8. GABAPENTIN [Concomitant]
     Active Substance: GABAPENTIN
  9. METHOTREXATE [Concomitant]
     Active Substance: METHOTREXATE
  10. MONTELUKAST [Concomitant]
     Active Substance: MONTELUKAST SODIUM
  11. OMEPRAZOLE [Concomitant]
     Active Substance: OMEPRAZOLE
  12. PREDNISONE [Concomitant]
     Active Substance: PREDNISONE
  13. TEMAZEPAM [Concomitant]
     Active Substance: TEMAZEPAM
  14. TESTOSTERONE [Concomitant]
     Active Substance: TESTOSTERONE
  15. TIZANIDINE [Concomitant]
     Active Substance: TIZANIDINE
  16. TRAZODONE [Concomitant]
     Active Substance: TRAZODONE HYDROCHLORIDE
  17. TRELEGY ELLIPTA [Concomitant]
     Active Substance: FLUTICASONE FUROATE\UMECLIDINIUM BROMIDE\VILANTEROL TRIFENATATE
  18. AMITRIPTYLINE [Concomitant]
     Active Substance: AMITRIPTYLINE
  19. BUPROPION HYDROCHLORIDE [Concomitant]
     Active Substance: BUPROPION HYDROCHLORIDE
  20. DICLOFENAC [Concomitant]
     Active Substance: DICLOFENAC

REACTIONS (6)
  - Impaired quality of life [Unknown]
  - Asthma [Unknown]
  - Fatigue [Unknown]
  - Upper respiratory tract infection [Unknown]
  - Nasal congestion [Unknown]
  - Arthralgia [Unknown]

NARRATIVE: CASE EVENT DATE: 20211001
